FAERS Safety Report 5205325-8 (Version None)
Quarter: 2007Q1

REPORT INFORMATION
  Report Type: 
  Country: None (occurrence: None)
  Receive Date: 20070108
  Receipt Date: 20061222
  Transmission Date: 20070707
  Serious: Yes (Other)
  Sender: FDA-Public Use
  Company Number: 232787

PATIENT

DRUGS (1)
  1. AVASTIN [Suspect]
     Indication: MACULAR DEGENERATION
     Dosage: 125 MG, SINGLE, INTRAOCULAR
     Route: 031

REACTIONS (2)
  - BLINDNESS [None]
  - EYE INFLAMMATION [None]
